FAERS Safety Report 11422784 (Version 1)
Quarter: 2015Q3

REPORT INFORMATION
  Report Type: Spontaneous
  Country: US (occurrence: US)
  Receive Date: 20150827
  Receipt Date: 20150827
  Transmission Date: 20151125
  Serious: Yes (Other)
  Sender: FDA-Public Use
  Company Number: US-SHIRE-US201510553

PATIENT
  Age: 6 Year
  Sex: Female
  Weight: 58.96 kg

DRUGS (5)
  1. INTUNIV [Suspect]
     Active Substance: GUANFACINE HYDROCHLORIDE
     Indication: TOURETTE^S DISORDER
     Dosage: 1 MG, 1X/DAY:QD (DAILY)
     Route: 048
     Dates: start: 200901
  2. INTUNIV [Suspect]
     Active Substance: GUANFACINE HYDROCHLORIDE
     Dosage: 3 MG, 1X/DAY:QD (DAILY)
     Route: 048
     Dates: end: 201405
  3. INTUNIV [Suspect]
     Active Substance: GUANFACINE HYDROCHLORIDE
     Dosage: 4 MG, 1X/DAY:QD (DAILY)
     Route: 048
     Dates: start: 201503
  4. INTUNIV [Suspect]
     Active Substance: GUANFACINE HYDROCHLORIDE
     Dosage: 2 MG, 1X/DAY:QD (DAILY)
     Route: 048
  5. INTUNIV [Suspect]
     Active Substance: GUANFACINE HYDROCHLORIDE
     Dosage: 4 MG, 1X/DAY:QD (DAILY)
     Route: 048
     Dates: start: 201405, end: 201501

REACTIONS (4)
  - Therapeutic response unexpected [Not Recovered/Not Resolved]
  - Brain neoplasm [Not Recovered/Not Resolved]
  - Brain oedema [Recovered/Resolved]
  - Product use issue [Not Recovered/Not Resolved]

NARRATIVE: CASE EVENT DATE: 200901
